FAERS Safety Report 4275402-7 (Version None)
Quarter: 2004Q1

REPORT INFORMATION
  Report Type: 
  Country: None (occurrence: None)
  Receive Date: 20040116
  Receipt Date: 20040106
  Transmission Date: 20041129
  Serious: Yes (Other)
  Sender: FDA-Public Use
  Company Number: 2004001231

PATIENT
  Sex: Female
  Weight: 77.1115 kg

DRUGS (13)
  1. NEURONTIN [Suspect]
     Indication: CONVULSION
     Dosage: 2400 MG (QID), ORAL
     Route: 048
     Dates: start: 20020101, end: 20040105
  2. PREDNISONE [Concomitant]
  3. CLOPIDOGREL BISULFATE [Concomitant]
  4. DIPYRIDAMOLE [Concomitant]
  5. DILTIAZEM [Concomitant]
  6. OMEPRAZOLE [Concomitant]
  7. HYDROPCHLOROTHIAZIDE (HYDROCHLORTHIAZIDE) [Concomitant]
  8. HYDROXYZINE HCL [Concomitant]
  9. PROGESTERONE [Concomitant]
  10. METOPROLOL SUCCINATE [Concomitant]
  11. FLUDROCORTISONE ACETATE (FLUDOCORTISONE ACETATE) [Concomitant]
  12. ZOLPIDEM TARTRATE [Concomitant]
  13. FENTANYL [Concomitant]

REACTIONS (3)
  - DISTURBANCE IN ATTENTION [None]
  - SUICIDAL IDEATION [None]
  - WEIGHT INCREASED [None]
